FAERS Safety Report 7951733-1 (Version None)
Quarter: 2011Q4

REPORT INFORMATION
  Report Type: 
  Country: None (occurrence: None)
  Receive Date: 20111201
  Receipt Date: 20111129
  Transmission Date: 20120403
  Serious: No
  Sender: FDA-Public Use
  Company Number: US-BAYER-2011-114512

PATIENT
  Sex: Female

DRUGS (4)
  1. PERCOCET [Concomitant]
  2. SALFLEX [Concomitant]
  3. AMITRIPTYLINE HCL [Concomitant]
  4. BETASERON [Suspect]
     Dosage: 3 MG, QOD

REACTIONS (2)
  - DIZZINESS [None]
  - INFLUENZA LIKE ILLNESS [None]
